FAERS Safety Report 19709342 (Version 1)
Quarter: 2021Q3

REPORT INFORMATION
  Report Type: Spontaneous
  Country: CA (occurrence: CA)
  Receive Date: 20210817
  Receipt Date: 20210817
  Transmission Date: 20211014
  Serious: Yes (Other)
  Sender: FDA-Public Use
  Company Number: CA-TEVA-2021-CA-1942667

PATIENT
  Age: 58 Year
  Sex: Male

DRUGS (9)
  1. HYDRALAZINE [Concomitant]
     Active Substance: HYDRALAZINE HYDROCHLORIDE
     Indication: HYPERTENSION
     Dosage: 40 MILLIGRAM DAILY;
     Route: 065
  2. AMLODIPINE [Concomitant]
     Active Substance: AMLODIPINE BESYLATE
     Indication: HYPERTENSION
     Dosage: 10 MILLIGRAM DAILY;
     Route: 065
  3. CHLORTHALIDONE. [Concomitant]
     Active Substance: CHLORTHALIDONE
     Indication: HYPERTENSION
     Dosage: 25 MILLIGRAM DAILY;
     Route: 065
  4. CLOPIDOGREL [Concomitant]
     Active Substance: CLOPIDOGREL BISULFATE
     Indication: PRODUCT USED FOR UNKNOWN INDICATION
     Route: 065
  5. CLONIDINE. [Suspect]
     Active Substance: CLONIDINE
     Indication: HYPERTENSION
     Dosage: .3 MILLIGRAM DAILY;
     Route: 065
  6. HYDRALAZINE [Concomitant]
     Active Substance: HYDRALAZINE HYDROCHLORIDE
     Dosage: 80 MILLIGRAM DAILY;
     Route: 065
  7. ROSUVASTATIN. [Concomitant]
     Active Substance: ROSUVASTATIN
     Indication: PRODUCT USED FOR UNKNOWN INDICATION
     Route: 065
  8. SPIRONOLACTONE. [Concomitant]
     Active Substance: SPIRONOLACTONE
     Indication: HYPERTENSION
     Dosage: 50 MILLIGRAM DAILY;
     Route: 065
  9. CLONIDINE. [Suspect]
     Active Substance: CLONIDINE
     Dosage: 1.5 MILLIGRAM DAILY;
     Route: 065

REACTIONS (5)
  - Renal artery stenosis [Not Recovered/Not Resolved]
  - Mesenteric arterial occlusion [Not Recovered/Not Resolved]
  - Weight decreased [Not Recovered/Not Resolved]
  - Intestinal ischaemia [Not Recovered/Not Resolved]
  - Coeliac artery stenosis [Not Recovered/Not Resolved]
